FAERS Safety Report 7505462-9 (Version None)
Quarter: 2011Q2

REPORT INFORMATION
  Report Type: 
  Country: None (occurrence: None)
  Receive Date: 20110519
  Receipt Date: 20110505
  Transmission Date: 20111010
  Serious: Yes (Hospitalization)
  Sender: FDA-Public Use
  Company Number: 2011091546

PATIENT
  Age: 59 Year
  Sex: Female

DRUGS (7)
  1. DALTEPARIN SODIUM [Suspect]
     Indication: LUNG NEOPLASM MALIGNANT
     Dosage: 5000 IU DAILY, SUBCUTANEOUS
     Route: 058
     Dates: start: 20110216
  2. FOLIC ACID [Concomitant]
  3. METOCLOPRAMIDE [Concomitant]
  4. MARIJUANA (CANNABIS) [Concomitant]
  5. OMEPRAZOLE [Concomitant]
  6. CODEINE PHOSPHATE AND ACETAMINOPHEN [Concomitant]
  7. DEXAMETHASONE [Concomitant]

REACTIONS (6)
  - METASTASES TO CENTRAL NERVOUS SYSTEM [None]
  - SUBSTANCE USE [None]
  - AMNESIA [None]
  - BACK PAIN [None]
  - AGGRESSION [None]
  - MOOD ALTERED [None]
